FAERS Safety Report 5813275-9 (Version None)
Quarter: 2008Q3

REPORT INFORMATION
  Report Type: 
  Country: None (occurrence: None)
  Receive Date: 20080717
  Receipt Date: 20080709
  Transmission Date: 20090109
  Serious: Yes (Other)
  Sender: FDA-Public Use
  Company Number: US-BAYER-200827597NA

PATIENT
  Sex: Female

DRUGS (3)
  1. CIPRO [Suspect]
     Indication: PNEUMONIA
     Dates: start: 20080401
  2. CIPRO [Suspect]
     Dates: start: 20080201
  3. STEROIDS [Concomitant]

REACTIONS (3)
  - HYPOAESTHESIA [None]
  - MUSCLE DISORDER [None]
  - MUSCULOSKELETAL STIFFNESS [None]
